FAERS Safety Report 12717432 (Version 1)
Quarter: 2016Q3

REPORT INFORMATION
  Report Type: Spontaneous
  Country: US (occurrence: US)
  Receive Date: 20160906
  Receipt Date: 20160906
  Transmission Date: 20161109
  Serious: Yes (Disabling)
  Sender: FDA-Public Use
  Company Number: None

PATIENT
  Age: 53 Year
  Sex: Female
  Weight: 85.5 kg

DRUGS (1)
  1. FENOFIBRATE 145MG TAB [Suspect]
     Active Substance: FENOFIBRATE
     Indication: BLOOD TRIGLYCERIDES INCREASED
     Route: 048
     Dates: start: 20151001, end: 20160831

REACTIONS (3)
  - Back pain [None]
  - Myalgia [None]
  - Hypoacusis [None]

NARRATIVE: CASE EVENT DATE: 20160801
